FAERS Safety Report 7159035-0 (Version None)
Quarter: 2010Q4

REPORT INFORMATION
  Report Type: 
  Country: None (occurrence: None)
  Receive Date: 20101214
  Receipt Date: 20101210
  Transmission Date: 20110411
  Serious: Yes (Hospitalization)
  Sender: FDA-Public Use
  Company Number: US-PFIZER INC-2010169397

PATIENT
  Sex: Female
  Weight: 63 kg

DRUGS (6)
  1. PROTONIX [Suspect]
     Indication: PEPTIC ULCER
     Dosage: 40 MG, 2X/DAY
     Route: 048
     Dates: start: 20100101
  2. TYLENOL (CAPLET) [Concomitant]
     Indication: PAIN
     Dosage: 680 MG, UNK
  3. CLONAZEPAM [Concomitant]
     Indication: POST-TRAUMATIC STRESS DISORDER
     Dosage: 2 MG, 3X/DAY
  4. NEURONTIN [Concomitant]
     Dosage: 300 MG, 3X/DAY
  5. DILAUDID [Concomitant]
     Dosage: UNK
  6. ZOLOFT [Concomitant]
     Dosage: 5 MG, 1X/DAY

REACTIONS (2)
  - DRUG INEFFECTIVE [None]
  - GASTROINTESTINAL ULCER [None]
